FAERS Safety Report 20332867 (Version 1)
Quarter: 2022Q1

REPORT INFORMATION
  Report Type: Spontaneous
  Country: IT (occurrence: IT)
  Receive Date: 20220113
  Receipt Date: 20220113
  Transmission Date: 20220423
  Serious: Yes (Other)
  Sender: FDA-Public Use
  Company Number: IT-PFIZER INC-03H-083-0227652-00

PATIENT
  Age: 52 Year
  Sex: Female

DRUGS (7)
  1. VECURONIUM BROMIDE [Suspect]
     Active Substance: VECURONIUM BROMIDE
     Indication: Anaesthesia
     Dosage: 6 MG
  2. VECURONIUM BROMIDE [Suspect]
     Active Substance: VECURONIUM BROMIDE
     Dosage: 2 MG(30 MIN LATER)
  3. FENTANYL CITRATE [Concomitant]
     Active Substance: FENTANYL CITRATE
     Indication: General anaesthesia
     Dosage: 150 UG(3 REFRACTED DOSES)
  4. PROPOFOL [Concomitant]
     Active Substance: PROPOFOL
     Indication: General anaesthesia
     Dosage: 150 MG
  5. NITROUS OXIDE [Concomitant]
     Active Substance: NITROUS OXIDE
     Indication: Maintenance of anaesthesia
     Dosage: UNK(50/50)
  6. OXYGEN [Concomitant]
     Active Substance: OXYGEN
     Indication: Maintenance of anaesthesia
     Dosage: UNK(50/50)
  7. FORANE [Concomitant]
     Active Substance: ISOFLURANE
     Indication: Maintenance of anaesthesia
     Dosage: MEAN DOSAGE(1%)

REACTIONS (3)
  - Diaphragm muscle weakness [Recovered/Resolved]
  - Muscular weakness [Recovered/Resolved]
  - Neuromuscular block prolonged [Recovered/Resolved]
